FAERS Safety Report 4407595-2 (Version None)
Quarter: 2004Q3

REPORT INFORMATION
  Report Type: 
  Country: None (occurrence: None)
  Receive Date: 20040726
  Receipt Date: 20040628
  Transmission Date: 20050211
  Serious: Yes (Hospitalization)
  Sender: FDA-Public Use
  Company Number: CA-ROCHE-372375

PATIENT
  Age: 34 Year
  Sex: Male

DRUGS (11)
  1. FUZEON [Suspect]
     Indication: HIV INFECTION
     Route: 058
     Dates: start: 20040515
  2. SERTRALINE HCL [Concomitant]
     Route: 048
     Dates: end: 20040625
  3. FLUCONAZOLE [Concomitant]
     Route: 048
  4. ZIAGEN [Concomitant]
     Indication: HIV INFECTION
     Route: 048
  5. VIREAD [Concomitant]
     Indication: HIV INFECTION
     Route: 048
  6. KALETRA [Concomitant]
     Indication: HIV INFECTION
     Route: 048
     Dates: start: 20040515
  7. 3TC [Concomitant]
     Indication: HIV INFECTION
     Route: 048
  8. SEPTRA [Concomitant]
     Route: 048
  9. TOLTERODINE [Concomitant]
     Route: 048
  10. CODEINE [Concomitant]
     Dosage: GIVEN AT NIGHT.
     Route: 048
  11. POTASSIUM CHLORIDE [Concomitant]
     Route: 048

REACTIONS (2)
  - ACUTE PSYCHOSIS [None]
  - DELIRIUM [None]
